FAERS Safety Report 26128863 (Version 1)
Quarter: 2025Q4

REPORT INFORMATION
  Report Type: Spontaneous
  Country: IR (occurrence: IR)
  Receive Date: 20251208
  Receipt Date: 20251208
  Transmission Date: 20260117
  Serious: Yes (Hospitalization, Other)
  Sender: AZURITY PHARMACEUTICALS
  Company Number: IR-AZURITY PHARMACEUTICALS, INC.-AZR202511-003603

PATIENT
  Age: 18 Year
  Sex: Female
  Weight: 45 kg

DRUGS (1)
  1. BACLOFEN [Suspect]
     Active Substance: BACLOFEN
     Indication: Product used for unknown indication
     Dosage: OVER 750 MG, UNK
     Route: 065

REACTIONS (7)
  - Neurological symptom [Recovered/Resolved]
  - Toxicity to various agents [Recovered/Resolved]
  - Respiratory depression [Recovered/Resolved]
  - Hallucination [Recovered/Resolved]
  - Intentional overdose [Recovered/Resolved]
  - Mania [Recovered/Resolved]
  - Catatonia [Recovered/Resolved]
